FAERS Safety Report 9778409 (Version 2)
Quarter: 2013Q4

REPORT INFORMATION
  Report Type: Spontaneous
  Country: US (occurrence: None)
  Receive Date: 20131219
  Receipt Date: 20131220
  Transmission Date: 20140711
  Serious: Yes (Death, Hospitalization)
  Sender: FDA-Public Use
  Company Number: USA/USA/13/0036163

PATIENT
  Age: 61 Year
  Sex: Female

DRUGS (2)
  1. LIDOCAINE [Suspect]
     Indication: ANALGESIC THERAPY
     Route: 062
     Dates: start: 20131102, end: 20131120
  2. LIDODERM [Suspect]
     Indication: ANALGESIC THERAPY
     Route: 062
     Dates: start: 20131102, end: 20131120

REACTIONS (2)
  - Cough [None]
  - Colon cancer metastatic [None]
